FAERS Safety Report 18708089 (Version 1)
Quarter: 2021Q1

REPORT INFORMATION
  Report Type: Spontaneous
  Country: US (occurrence: US)
  Receive Date: 20210106
  Receipt Date: 20210106
  Transmission Date: 20210419
  Serious: No
  Sender: FDA-Public Use
  Company Number: US-009507513-2012USA013070

PATIENT
  Age: 73 Year
  Sex: Male

DRUGS (8)
  1. MESALAMINE. [Concomitant]
     Active Substance: MESALAMINE
  2. INVANZ [Suspect]
     Active Substance: ERTAPENEM SODIUM
     Indication: CAMPYLOBACTER INFECTION
     Dosage: 1 GRAM, EVERY 24H
     Route: 042
  3. LEUPROLIDE [Concomitant]
     Active Substance: LEUPROLIDE
  4. LISINOPRIL. [Concomitant]
     Active Substance: LISINOPRIL
  5. APIXABAN [Concomitant]
     Active Substance: APIXABAN
  6. MERCAPTOPURINE. [Concomitant]
     Active Substance: MERCAPTOPURINE
  7. METOPROLOL. [Concomitant]
     Active Substance: METOPROLOL
  8. ROSUVASTATIN. [Concomitant]
     Active Substance: ROSUVASTATIN

REACTIONS (1)
  - Product use in unapproved indication [Unknown]
